FAERS Safety Report 8041030-0 (Version None)
Quarter: 2012Q1

REPORT INFORMATION
  Report Type: 
  Country: None (occurrence: None)
  Receive Date: 20120109
  Receipt Date: 20111227
  Transmission Date: 20120608
  Serious: Yes (Hospitalization, Other)
  Sender: FDA-Public Use
  Company Number: 2011HGS-003039

PATIENT
  Age: 35 Year
  Sex: Female
  Weight: 56.6996 kg

DRUGS (12)
  1. QUINAPRIL (QUINAPRIL) (QUINAPRIL) [Concomitant]
  2. TYLENOL WITH CODEINE (PANADEINE CO) (CODEINE PHOSPHATE PARACETAMOL) [Concomitant]
  3. CELLCEPT-MYCOPHENOLATE (MYCOPHENOLATE MOFETIL) (MYCOPHENOLATE MOFETIL) [Concomitant]
  4. BENLYSTA [Suspect]
     Indication: LUPUS ENDOCARDITIS
     Dosage: 1 IN 28 D, INTRAVENOUS DRIP
     Route: 041
     Dates: start: 20110601, end: 20111108
  5. BENLYSTA [Suspect]
     Indication: SYSTEMIC LUPUS ERYTHEMATOSUS
     Dosage: 1 IN 28 D, INTRAVENOUS DRIP
     Route: 041
     Dates: start: 20110601, end: 20111108
  6. IRON SUPPLEMENT (IRON) (IRON) [Concomitant]
  7. MEPRON (ATOVAQUONE) (ATOVAQUONE) [Concomitant]
  8. MULTIVITAMIN (VIGRAN) (ERGOCALCIFEROL, ASCORBIC ACID, PYRIDOXINE HYDRO [Concomitant]
  9. PREDNISONE [Concomitant]
  10. SENNA LAXATIVE (SENNOSIDE A+B) (SENNOSIDE A+B) [Concomitant]
  11. FISH OIL (FISH OIL) (FISH OIL) [Concomitant]
  12. STOOL SOFTENER (DOCUSATE SODIUM) (DOCUSATE SODIUM) [Concomitant]

REACTIONS (4)
  - INFLUENZA LIKE ILLNESS [None]
  - PNEUMONIA CYTOMEGALOVIRAL [None]
  - PNEUMOCYSTIS JIROVECI PNEUMONIA [None]
  - URINARY TRACT INFECTION [None]
